FAERS Safety Report 4975288-9 (Version None)
Quarter: 2006Q2

REPORT INFORMATION
  Report Type: 
  Country: None (occurrence: None)
  Receive Date: 20060418
  Receipt Date: 20050718
  Transmission Date: 20061013
  Serious: Yes (Hospitalization, Other)
  Sender: FDA-Public Use
  Company Number: US-MERCK-0507USA02833

PATIENT
  Age: 47 Year
  Sex: Male
  Weight: 107 kg

DRUGS (1)
  1. VIOXX [Suspect]
     Indication: OSTEOARTHRITIS
     Route: 048
     Dates: start: 20010101, end: 20040101

REACTIONS (20)
  - ANXIETY [None]
  - ARTERIOSCLEROSIS CORONARY ARTERY [None]
  - ARTHRALGIA [None]
  - ATTENTION DEFICIT/HYPERACTIVITY DISORDER [None]
  - BURSITIS [None]
  - CHEST PAIN [None]
  - COUGH [None]
  - DYSPHONIA [None]
  - DYSPNOEA [None]
  - FATIGUE [None]
  - HEADACHE [None]
  - INSOMNIA [None]
  - MYOCARDIAL INFARCTION [None]
  - NECK INJURY [None]
  - NECK PAIN [None]
  - NON-CARDIAC CHEST PAIN [None]
  - RESPIRATION ABNORMAL [None]
  - ROAD TRAFFIC ACCIDENT [None]
  - ROSACEA [None]
  - VIRAL UPPER RESPIRATORY TRACT INFECTION [None]
